FAERS Safety Report 9203642 (Version 3)
Quarter: 2014Q2

REPORT INFORMATION
  Report Type: Spontaneous
  Country: CN (occurrence: CN)
  Receive Date: 20130402
  Receipt Date: 20140514
  Transmission Date: 20141212
  Serious: Yes (Other)
  Sender: FDA-Public Use
  Company Number: PHHY2013CN031014

PATIENT
  Age: 113 Year
  Sex: Female

DRUGS (2)
  1. ZOMETA [Suspect]
     Indication: METASTASES TO BONE
     Dosage: 40 MG, PER WEEK
     Route: 042
     Dates: start: 20130301, end: 20130410
  2. ZOMETA [Suspect]
     Indication: NEOPLASM MALIGNANT

REACTIONS (1)
  - Osteonecrosis of jaw [Unknown]
